FAERS Safety Report 7937559-3 (Version None)
Quarter: 2011Q4

REPORT INFORMATION
  Report Type: 
  Country: None (occurrence: None)
  Receive Date: 20111123
  Receipt Date: 20111117
  Transmission Date: 20120403
  Serious: Yes (Other)
  Sender: FDA-Public Use
  Company Number: AT-ABBOTT-11P-009-0876561-00

PATIENT
  Sex: Male

DRUGS (1)
  1. HUMIRA [Suspect]
     Indication: CROHN'S DISEASE
     Dosage: 80 MG INITIALLY, THEN 40 MG Q 2 WEEKS
     Route: 058
     Dates: start: 20081101

REACTIONS (6)
  - CONGESTIVE CARDIOMYOPATHY [None]
  - CARDIAC FAILURE [None]
  - CROHN'S DISEASE [None]
  - EJECTION FRACTION DECREASED [None]
  - ANAL FISTULA [None]
  - BRAIN NATRIURETIC PEPTIDE INCREASED [None]
